FAERS Safety Report 5188187-7 (Version None)
Quarter: 2006Q4

REPORT INFORMATION
  Report Type: 
  Country: None (occurrence: None)
  Receive Date: 20061221
  Receipt Date: 20061201
  Transmission Date: 20070319
  Serious: Yes (Hospitalization)
  Sender: FDA-Public Use
  Company Number: US-NOVOPROD-258988

PATIENT
  Age: 71 Year
  Sex: Male

DRUGS (1)
  1. NOVOSEVEN [Suspect]
     Indication: SHOCK HAEMORRHAGIC
     Dosage: 9.6 MG, UNK
     Route: 042

REACTIONS (2)
  - THROMBOSIS [None]
  - VASCULAR BYPASS GRAFT [None]
